FAERS Safety Report 9146153 (Version 1)
Quarter: 2013Q1

REPORT INFORMATION
  Report Type: Spontaneous
  Country: US (occurrence: None)
  Receive Date: 20130226
  Receipt Date: 20130226
  Transmission Date: 20140127
  Serious: Yes (Death, Hospitalization)
  Sender: FDA-Public Use
  Company Number: 2013AP002695

PATIENT
  Age: 78 Year
  Sex: Female

DRUGS (11)
  1. SUMATRIPTAN [Suspect]
     Route: 048
  2. CYCLOSPORINE [Suspect]
  3. PREDNISONE [Concomitant]
  4. DILTIAZEM [Concomitant]
  5. ATENOLOL [Concomitant]
  6. ALLOPURINOL [Concomitant]
  7. THIAMAZOLE [Concomitant]
  8. RISEDRONIC ACID [Concomitant]
  9. TEMAZEPAM [Concomitant]
  10. ALPRAZOLAM [Concomitant]
  11. FUROSEMIDE [Concomitant]

REACTIONS (6)
  - Renal infarct [None]
  - Abdominal pain [None]
  - Blood urine present [None]
  - Oliguria [None]
  - Anuria [None]
  - Complications of transplanted kidney [None]
